FAERS Safety Report 17648982 (Version 1)
Quarter: 2020Q2

REPORT INFORMATION
  Report Type: Spontaneous
  Country: TR (occurrence: TR)
  Receive Date: 20200409
  Receipt Date: 20200409
  Transmission Date: 20200713
  Serious: Yes (Hospitalization)
  Sender: FDA-Public Use
  Company Number: TR-ENDO PHARMACEUTICALS INC-2020-002966

PATIENT
  Age: 39 Year
  Sex: Female

DRUGS (1)
  1. TAMSULOSIN HYDROCHLORIDE. [Suspect]
     Active Substance: TAMSULOSIN HYDROCHLORIDE
     Indication: NEUROGENIC BLADDER
     Dosage: UNK UNKNOWN, UNKNOWN
     Route: 065

REACTIONS (4)
  - Hyperprolactinaemia [Recovered/Resolved]
  - Off label use [Recovered/Resolved]
  - Galactorrhoea [Recovered/Resolved]
  - Hypoaesthesia [Recovered/Resolved]
